FAERS Safety Report 7628213-6 (Version None)
Quarter: 2011Q3

REPORT INFORMATION
  Report Type: 
  Country: None (occurrence: None)
  Receive Date: 20110722
  Receipt Date: 20110120
  Transmission Date: 20111222
  Serious: No
  Sender: FDA-Public Use
  Company Number: US-BAYER-2011-011940

PATIENT
  Age: 38 Year
  Sex: Female

DRUGS (2)
  1. BETASERON [Suspect]
     Indication: MULTIPLE SCLEROSIS
  2. IBUPROFEN (ADVIL) [Concomitant]
     Dosage: UNK

REACTIONS (1)
  - INFLUENZA LIKE ILLNESS [None]
